FAERS Safety Report 19735976 (Version 1)
Quarter: 2021Q3

REPORT INFORMATION
  Report Type: Spontaneous
  Country: PL (occurrence: PL)
  Receive Date: 20210823
  Receipt Date: 20210823
  Transmission Date: 20211014
  Serious: Yes (Other)
  Sender: FDA-Public Use
  Company Number: PL-MYLANLABS-2021M1053487

PATIENT
  Age: 71 Year
  Sex: Female
  Weight: 61 kg

DRUGS (1)
  1. PACLITAXEL. [Suspect]
     Active Substance: PACLITAXEL
     Indication: PRODUCT USED FOR UNKNOWN INDICATION
     Dosage: 120 MILLIGRAM
     Route: 042
     Dates: start: 20181122

REACTIONS (6)
  - Erythema [Unknown]
  - Anxiety [Unknown]
  - Speech disorder [Unknown]
  - Dyspnoea [Unknown]
  - Chest discomfort [Unknown]
  - Blood pressure increased [Unknown]

NARRATIVE: CASE EVENT DATE: 20181122
